FAERS Safety Report 7381823-6 (Version None)
Quarter: 2011Q1

REPORT INFORMATION
  Report Type: 
  Country: None (occurrence: None)
  Receive Date: 20110329
  Receipt Date: 20110315
  Transmission Date: 20110831
  Serious: Yes (Other)
  Sender: FDA-Public Use
  Company Number: PHHY2011LK21844

PATIENT
  Age: 60 Year
  Sex: Male

DRUGS (4)
  1. THALIDOMIDE [Suspect]
     Indication: TYPE 2 LEPRA REACTION
     Dosage: 100 MG, BID
  2. PREDNISOLONE [Suspect]
     Indication: TYPE 2 LEPRA REACTION
     Dosage: 30 MG/DAY
     Route: 048
  3. PREDNISOLONE [Suspect]
     Dosage: 10 MG/DAY
     Route: 048
  4. PREDNISOLONE [Suspect]
     Dosage: 15 MG/DAY
     Route: 048

REACTIONS (13)
  - DYSPNOEA [None]
  - CHEST PAIN [None]
  - OEDEMA PERIPHERAL [None]
  - DEEP VEIN THROMBOSIS [None]
  - PAIN IN EXTREMITY [None]
  - TACHYCARDIA [None]
  - COLLAPSE OF LUNG [None]
  - PULMONARY EMBOLISM [None]
  - PERIPHERAL SENSORY NEUROPATHY [None]
  - EMBOLISM VENOUS [None]
  - ANAEMIA [None]
  - THROMBOCYTOPENIA [None]
  - PLEURAL EFFUSION [None]
